FAERS Safety Report 11071301 (Version 1)
Quarter: 2015Q2

REPORT INFORMATION
  Report Type: Spontaneous
  Country: IT (occurrence: None)
  Receive Date: 20150424
  Receipt Date: 20150424
  Transmission Date: 20150821
  Serious: Yes (Death, Hospitalization, Other)
  Sender: FDA-Public Use
  Company Number: IT-ZYDUS-007651

PATIENT
  Age: 68 Year
  Sex: Male

DRUGS (4)
  1. ENOXAPARIN SODIUM. [Suspect]
     Active Substance: ENOXAPARIN SODIUM
     Indication: ANTICOAGULANT THERAPY
  2. ASPIRIN (ASPIRIN) [Suspect]
     Active Substance: ASPIRIN
     Indication: ANTIPLATELET THERAPY
  3. WARFARIN (WARFARIN) [Suspect]
     Active Substance: WARFARIN
     Indication: PRODUCT USED FOR UNKNOWN INDICATION
  4. PRASUGREL (PRASUGREL) [Suspect]
     Active Substance: PRASUGREL
     Indication: ANTIPLATELET THERAPY

REACTIONS (3)
  - Haemodynamic instability [None]
  - Large intestinal ulcer haemorrhage [None]
  - Cardiac arrest [None]
